FAERS Safety Report 6975732-1 (Version None)
Quarter: 2010Q3

REPORT INFORMATION
  Report Type: 
  Country: None (occurrence: None)
  Receive Date: 20100910
  Receipt Date: 20090401
  Transmission Date: 20110219
  Serious: No
  Sender: FDA-Public Use
  Company Number: US-WYE-H08812009

PATIENT

DRUGS (4)
  1. PRISTIQ [Suspect]
     Indication: MAJOR DEPRESSION
     Dosage: 50 MG - FREQUENCY UNSPECIFIED
     Route: 048
  2. PRISTIQ [Suspect]
     Route: 048
  3. PRISTIQ [Suspect]
     Route: 048
  4. PRISTIQ [Suspect]
     Route: 048

REACTIONS (1)
  - AGITATION [None]
